FAERS Safety Report 11324920 (Version 1)
Quarter: 2015Q3

REPORT INFORMATION
  Report Type: Spontaneous
  Country: GB (occurrence: GB)
  Receive Date: 20150730
  Receipt Date: 20150730
  Transmission Date: 20151125
  Serious: Yes (Death, Hospitalization)
  Sender: FDA-Public Use
  Company Number: GB-TEVA-573770ACC

PATIENT
  Age: 76 Year
  Sex: Male

DRUGS (3)
  1. WARFARIN [Suspect]
     Active Substance: WARFARIN
     Dosage: 7TH DAY
  2. WARFARIN [Suspect]
     Active Substance: WARFARIN
     Indication: THROMBOSIS
     Dates: start: 1978, end: 20150219
  3. WARFARIN [Suspect]
     Active Substance: WARFARIN
     Dosage: RECENTLY TAKING 10 MG PER DAY FOR 6 DAYS

REACTIONS (2)
  - Cerebral haemorrhage [Fatal]
  - Mobility decreased [Fatal]

NARRATIVE: CASE EVENT DATE: 20150220
